FAERS Safety Report 19510783 (Version 9)
Quarter: 2022Q1

REPORT INFORMATION
  Report Type: Spontaneous
  Country: GB (occurrence: GB)
  Receive Date: 20210709
  Receipt Date: 20220303
  Transmission Date: 20220424
  Serious: Yes (Death, Life-Threatening, Hospitalization, Disabling, Other)
  Sender: FDA-Public Use
  Company Number: None

PATIENT
  Age: 76 Year
  Sex: Male
  Weight: 69 kg

DRUGS (35)
  1. CEFUROXIME AXETIL [Suspect]
     Active Substance: CEFUROXIME AXETIL
     Indication: Product used for unknown indication
     Dosage: UNK
     Route: 065
     Dates: start: 20180131
  2. OMEPRAZOLE [Suspect]
     Active Substance: OMEPRAZOLE
     Indication: Product used for unknown indication
     Dosage: OMEPRAZOLE CHEMO IBERICA 20 MG DAILY (20MILLIGRAM , QD, MORNING)
     Route: 048
  3. OMEPRAZOLE [Suspect]
     Active Substance: OMEPRAZOLE
     Dosage: 5 MILLIGRAM, QD(IN THE MORNING)
     Route: 048
  4. TACROLIMUS [Suspect]
     Active Substance: TACROLIMUS
     Indication: Renal transplant
     Dosage: TACROLIMUS 1.5 MG TWICE A DAY
     Route: 065
     Dates: start: 20100127, end: 20180130
  5. TACROLIMUS [Suspect]
     Active Substance: TACROLIMUS
     Dosage: TACROLIMUS 2 MG TWICE DAILY
     Route: 048
     Dates: end: 20180128
  6. HYDROCORTISONE [Suspect]
     Active Substance: HYDROCORTISONE
     Indication: Product used for unknown indication
     Dosage: HYDRORTISIONE 50 MG THREE TIMES A DAY
     Route: 042
     Dates: start: 20180201
  7. HYDROCORTISONE [Suspect]
     Active Substance: HYDROCORTISONE
     Dosage: 500 NANOGRAM, QD
     Route: 048
  8. ENVARSUS XR [Suspect]
     Active Substance: TACROLIMUS
     Indication: Renal transplant
     Dosage: UNK
     Route: 065
  9. BISOPROLOL [Suspect]
     Active Substance: BISOPROLOL
     Indication: Product used for unknown indication
     Dosage: 150 MILLIGRAM, TID
     Route: 065
     Dates: start: 20180131
  10. CLARITHROMYCIN [Suspect]
     Active Substance: CLARITHROMYCIN
     Indication: Pneumonia
     Dosage: 500 MILLIGRAM
     Route: 042
     Dates: start: 20180127, end: 20180131
  11. NITROGLYCERIN [Suspect]
     Active Substance: NITROGLYCERIN
     Indication: Product used for unknown indication
     Dosage: 500 NANOGRAM, QD
     Route: 065
  12. TACROLIMUS [Suspect]
     Active Substance: TACROLIMUS
     Indication: Prophylaxis against transplant rejection
     Dosage: 15 MILLIGRAM, BID
     Route: 048
     Dates: start: 20180127
  13. ENVARSUS XR [Suspect]
     Active Substance: TACROLIMUS
     Indication: Renal transplant
     Dosage: 3 MG, QD (1.5 MG, BID)
     Route: 065
     Dates: start: 20180127, end: 20180131
  14. NITROGLYCERIN [Suspect]
     Active Substance: NITROGLYCERIN
     Indication: Product used for unknown indication
     Dosage: 50 MILLIGRAM, TID
     Route: 065
     Dates: start: 20180201
  15. OMEPRAZOLE [Suspect]
     Active Substance: OMEPRAZOLE
     Indication: Duodenal ulcer
     Dosage: 20 MILLIGRAM, QD
     Route: 048
  16. ALFACALCIDOL [Concomitant]
     Active Substance: ALFACALCIDOL
     Indication: Product used for unknown indication
     Dosage: ALFACALCIDOL 500NG OD PO O/A
     Route: 048
  17. ALFACALCIDOL [Concomitant]
     Active Substance: ALFACALCIDOL
     Dosage: 8 MILLIGRAM MONTHLY
     Route: 048
  18. ALLOPURINOL [Concomitant]
     Active Substance: ALLOPURINOL
     Indication: Product used for unknown indication
     Dosage: ALLOPURINOL 100MG OD PO O/A
     Route: 048
  19. BETAHISTINE [Concomitant]
     Active Substance: BETAHISTINE
     Indication: Product used for unknown indication
     Dosage: BETAHISTINE 8MG OM PO
     Route: 048
  20. BETAHISTINE [Concomitant]
     Active Substance: BETAHISTINE
     Dosage: 20 NANOGRAM MONTHLY
     Route: 048
  21. CHOLECALCIFEROL [Concomitant]
     Active Substance: CHOLECALCIFEROL
     Indication: Product used for unknown indication
     Dosage: CALCIUM CARBONATE + COLECALCIFEROL 20NG DAILY
     Route: 048
  22. DEXTROSE [Concomitant]
     Active Substance: DEXTROSE
     Indication: Product used for unknown indication
     Dosage: 100 MILLIGRAM, QD
     Route: 065
     Dates: start: 20180130
  23. DOXYCYCLINE [Concomitant]
     Active Substance: DOXYCYCLINE
     Indication: Product used for unknown indication
     Dosage: 20 MILLIGRAM, QD
     Route: 048
     Dates: end: 20180130
  24. EPLERENONE [Concomitant]
     Active Substance: EPLERENONE
     Indication: Product used for unknown indication
     Dosage: EPLERENONE 25MG OM PO O/A
     Route: 048
     Dates: end: 20180130
  25. FUROSEMIDE [Concomitant]
     Active Substance: FUROSEMIDE
     Indication: Product used for unknown indication
     Dosage: FUROSEMIDE 80MG OM PO O/A
     Route: 048
     Dates: end: 20180130
  26. FUROSEMIDE [Concomitant]
     Active Substance: FUROSEMIDE
     Dosage: 40 MILLIGRAM, QD
     Route: 065
  27. GLICLAZIDE [Concomitant]
     Active Substance: GLICLAZIDE
     Indication: Product used for unknown indication
     Dosage: GLICLAZIDE 40MG OM PO O/A
     Route: 048
  28. GLUCAGON [Concomitant]
     Active Substance: GLUCAGON
     Indication: Product used for unknown indication
     Dosage: UNK
     Route: 030
     Dates: start: 20180130
  29. NITROGLYCERIN [Concomitant]
     Active Substance: NITROGLYCERIN
     Indication: Product used for unknown indication
     Dosage: UNK
     Route: 065
  30. PREDNISOLONE [Concomitant]
     Active Substance: PREDNISOLONE
     Indication: Product used for unknown indication
     Dosage: INCREASE PREDNISOLONE TO 10 MG FOR 5 DAYS;
     Route: 065
     Dates: start: 20180127
  31. ALBUTEROL [Concomitant]
     Active Substance: ALBUTEROL
     Indication: Product used for unknown indication
     Dosage: UNK
     Route: 065
     Dates: start: 20180130
  32. SENNA [Concomitant]
     Active Substance: SENNA LEAF\SENNOSIDES\SENNOSIDES A AND B
     Indication: Product used for unknown indication
     Dosage: SENNA 15MG ON PO O/A
     Route: 048
     Dates: start: 20180130
  33. DEXTROSE [Concomitant]
     Active Substance: DEXTROSE
     Indication: Product used for unknown indication
     Dosage: UNK
     Route: 065
  34. SENNOSIDES A AND B [Concomitant]
     Active Substance: SENNOSIDES A AND B
     Indication: Product used for unknown indication
     Dosage: UNK
     Route: 065
     Dates: start: 20180130
  35. GLUCOGEL [Concomitant]
     Indication: Product used for unknown indication
     Dosage: UNK
     Route: 065

REACTIONS (35)
  - Acute kidney injury [Fatal]
  - Myocardial ischaemia [Fatal]
  - Oesophageal carcinoma [Fatal]
  - Sepsis [Fatal]
  - Cardiac failure congestive [Fatal]
  - Immunosuppressant drug level increased [Fatal]
  - Toxicity to various agents [Fatal]
  - Drug level increased [Fatal]
  - Pneumonia [Fatal]
  - Multimorbidity [Fatal]
  - Oesophageal perforation [Fatal]
  - Labelled drug-drug interaction medication error [Fatal]
  - Swelling [Fatal]
  - Dyspnoea [Fatal]
  - Transplant failure [Fatal]
  - Myocardial ischaemia [Fatal]
  - Haemoptysis [Fatal]
  - Soft tissue mass [Fatal]
  - Cardiomegaly [Fatal]
  - Lung consolidation [Fatal]
  - Rales [Fatal]
  - Pyrexia [Fatal]
  - Hypoglycaemia [Fatal]
  - Lower respiratory tract infection [Fatal]
  - Productive cough [Fatal]
  - Dysphagia [Fatal]
  - Superinfection [Fatal]
  - Rash [Fatal]
  - Ascites [Fatal]
  - Pleural effusion [Fatal]
  - Inflammatory marker increased [Fatal]
  - Malaise [Unknown]
  - Renal impairment [Unknown]
  - Cough [Unknown]
  - Drug interaction [Not Recovered/Not Resolved]

NARRATIVE: CASE EVENT DATE: 20180118
